FAERS Safety Report 11854632 (Version 1)
Quarter: 2015Q4

REPORT INFORMATION
  Report Type: Spontaneous
  Country: US (occurrence: None)
  Receive Date: 20151218
  Receipt Date: 20151218
  Transmission Date: 20160305
  Serious: Yes (Hospitalization)
  Sender: FDA-Public Use
  Company Number: None

PATIENT
  Age: 58 Year
  Sex: Female

DRUGS (2)
  1. OLAY REGENERIST REGENERATING BROAD SPECTRUM SPF 50 [Suspect]
     Active Substance: AVOBENZONE\HOMOSALATE\OCTISALATE\OCTOCRYLENE\OXYBENZONE
     Dosage: NICKEL SIZED AMOUNT
     Route: 061
     Dates: end: 201504
  2. OLAY TOTAL EFFECTS TONE CORRECTING MOISTURIZER BROADSPECTRUM SPF 15 MEDIUM [Suspect]
     Active Substance: AVOBENZONE\OCTISALATE\OCTOCRYLENE
     Dosage: NICKEL SIZED AMOUNT
     Route: 061
     Dates: end: 201504

REACTIONS (5)
  - Swelling face [None]
  - Hypersensitivity [None]
  - Local swelling [None]
  - Staphylococcal infection [None]
  - Skin irritation [None]

NARRATIVE: CASE EVENT DATE: 2014
